FAERS Safety Report 5106192-3 (Version None)
Quarter: 2006Q3

REPORT INFORMATION
  Report Type: 
  Country: None (occurrence: None)
  Receive Date: 20060912
  Receipt Date: 20060830
  Transmission Date: 20061208
  Serious: Yes (Hospitalization)
  Sender: FDA-Public Use
  Company Number: 2006012265

PATIENT
  Age: 71 Year
  Sex: Male
  Weight: 99 kg

DRUGS (1)
  1. SUTENT [Suspect]
     Indication: RENAL CELL CARCINOMA STAGE UNSPECIFIED
     Dosage: 37.5 MG (37.5 MG, FREQUENCY: 1 / DAY INTERVAL: EVERYDAY), ORAL
     Route: 048
     Dates: start: 20051226, end: 20060115

REACTIONS (2)
  - ARTHRITIS BACTERIAL [None]
  - MEDICAL DEVICE COMPLICATION [None]
